FAERS Safety Report 6086491-1 (Version None)
Quarter: 2009Q1

REPORT INFORMATION
  Report Type: 
  Country: None (occurrence: None)
  Receive Date: 20090223
  Receipt Date: 20090213
  Transmission Date: 20090719
  Serious: Yes (Other)
  Sender: FDA-Public Use
  Company Number: PHHY2009CA04710

PATIENT
  Sex: Male

DRUGS (6)
  1. DIOVAN [Suspect]
     Indication: HYPERTENSION
     Dosage: 40 MG, ONCE DAILY
  2. DIOVAN [Suspect]
     Indication: CARDIOMYOPATHY
  3. ASPIRIN [Concomitant]
     Dosage: 81 MG
  4. LOSEC [Concomitant]
     Dosage: 20 MG
  5. PEPCID [Concomitant]
  6. VITAMIN D [Concomitant]

REACTIONS (8)
  - BLOOD PRESSURE DECREASED [None]
  - CONFUSIONAL STATE [None]
  - DEPRESSION [None]
  - DIZZINESS [None]
  - EYELIDS PRURITUS [None]
  - MOTOR DYSFUNCTION [None]
  - PRURITUS [None]
  - SOMNOLENCE [None]
